FAERS Safety Report 7572223-4 (Version None)
Quarter: 2011Q2

REPORT INFORMATION
  Report Type: 
  Country: None (occurrence: None)
  Receive Date: 20110624
  Receipt Date: 20110613
  Transmission Date: 20111010
  Serious: No
  Sender: FDA-Public Use
  Company Number: PHHY2011US51549

PATIENT
  Sex: Female
  Weight: 72.562 kg

DRUGS (2)
  1. TASIGNA [Suspect]
     Dosage: 200 MG, BID
  2. TYLENOL-500 [Concomitant]
     Dosage: 650 MG, UNK

REACTIONS (3)
  - SINUSITIS [None]
  - MYALGIA [None]
  - COUGH [None]
